FAERS Safety Report 16630092 (Version 1)
Quarter: 2019Q3

REPORT INFORMATION
  Report Type: Spontaneous
  Country: US (occurrence: US)
  Receive Date: 20190725
  Receipt Date: 20190725
  Transmission Date: 20191004
  Serious: No
  Sender: FDA-Public Use
  Company Number: US-RECRO GAINESVILLE LLC-REPH-2019-000030

PATIENT
  Sex: Male

DRUGS (2)
  1. VERAPAMIL HYDROCHLORIDE SUSTAINED RELEASE [Suspect]
     Active Substance: VERAPAMIL HYDROCHLORIDE
     Indication: HYPERTENSION
     Dosage: UNK
     Dates: start: 2018
  2. VERAPAMIL HYDROCHLORIDE EXTENDED RELEASE [Suspect]
     Active Substance: VERAPAMIL HYDROCHLORIDE
     Indication: HYPERTENSION
     Dosage: UNK
     Dates: start: 2018

REACTIONS (5)
  - Abdominal discomfort [Recovering/Resolving]
  - Malaise [Recovering/Resolving]
  - Drug ineffective [Unknown]
  - Gastrointestinal hypermotility [Recovering/Resolving]
  - Gastrooesophageal reflux disease [Recovering/Resolving]
